FAERS Safety Report 11720582 (Version 1)
Quarter: 2015Q4

REPORT INFORMATION
  Report Type: Spontaneous
  Country: US (occurrence: US)
  Receive Date: 20151110
  Receipt Date: 20151110
  Transmission Date: 20160304
  Serious: Yes (Other)
  Sender: FDA-Public Use
  Company Number: US-APOPHARMA USA, INC.-2013AP008837

PATIENT
  Sex: Female
  Weight: 50 kg

DRUGS (1)
  1. FERRIPROX [Suspect]
     Active Substance: DEFERIPRONE
     Indication: SIDEROBLASTIC ANAEMIA
     Route: 048
     Dates: start: 20120504, end: 201307

REACTIONS (1)
  - Neutropenia [Recovered/Resolved]
